FAERS Safety Report 7085023-9 (Version None)
Quarter: 2010Q4

REPORT INFORMATION
  Report Type: 
  Country: None (occurrence: None)
  Receive Date: 20101105
  Receipt Date: 20101025
  Transmission Date: 20110411
  Serious: Yes (Other)
  Sender: FDA-Public Use
  Company Number: CA-JNJFOC-20100704408

PATIENT
  Sex: Female
  Weight: 64.86 kg

DRUGS (19)
  1. REMICADE [Suspect]
     Indication: COLITIS ULCERATIVE
     Route: 042
  2. REMICADE [Suspect]
     Route: 042
  3. CALCIUM [Concomitant]
  4. LORAZEPAM [Concomitant]
  5. SYNTHROID [Concomitant]
     Route: 048
  6. ASAPHEN [Concomitant]
     Route: 048
  7. PANTOLOC [Concomitant]
     Route: 048
  8. AZATHIOPRINE [Concomitant]
  9. PREDNISONE [Concomitant]
     Route: 048
  10. MESALAMINE [Concomitant]
  11. SIMVASTATIN [Concomitant]
     Route: 048
  12. FLOVENT [Concomitant]
  13. SALBUTAMOL [Concomitant]
  14. STEMETIL [Concomitant]
  15. NITROGLYCERIN [Concomitant]
     Indication: CHEST DISCOMFORT
     Route: 060
  16. LYRICA [Concomitant]
  17. VITAMIN D [Concomitant]
  18. BROMAZEPAM [Concomitant]
  19. MEZAVANT [Concomitant]

REACTIONS (11)
  - ALOPECIA [None]
  - ASTHENIA [None]
  - FATIGUE [None]
  - FEELING ABNORMAL [None]
  - HEADACHE [None]
  - INFUSION RELATED REACTION [None]
  - NAIL DISCOLOURATION [None]
  - NAUSEA [None]
  - PRESYNCOPE [None]
  - RESTLESSNESS [None]
  - VISION BLURRED [None]
